FAERS Safety Report 17949845 (Version 1)
Quarter: 2020Q2

REPORT INFORMATION
  Report Type: Report from Study
  Country: CH (occurrence: CH)
  Receive Date: 20200626
  Receipt Date: 20200626
  Transmission Date: 20200714
  Serious: Yes (Hospitalization)
  Sender: FDA-Public Use
  Company Number: CH-ASTRAZENECA-2020SE28706

PATIENT
  Age: 64 Year
  Sex: Male

DRUGS (5)
  1. DURVALUMAB. [Suspect]
     Active Substance: DURVALUMAB
     Indication: TRANSITIONAL CELL CANCER OF THE RENAL PELVIS AND URETER
     Dosage: 1500 MG
     Route: 042
     Dates: start: 20181113
  2. NATRIUM HYDROGEN CARBONATE [Concomitant]
     Dosage: 4 G
     Route: 048
     Dates: start: 201903
  3. HYDROCORTISONE. [Concomitant]
     Active Substance: HYDROCORTISONE
     Dosage: 17,5 MG
     Route: 048
     Dates: start: 201903
  4. GEMCITABINE. [Suspect]
     Active Substance: GEMCITABINE
     Indication: TRANSITIONAL CELL CANCER OF THE RENAL PELVIS AND URETER
     Dosage: 1380 MG
     Route: 042
     Dates: start: 20181026
  5. CISPLATIN. [Suspect]
     Active Substance: CISPLATIN
     Indication: TRANSITIONAL CELL CANCER OF THE RENAL PELVIS AND URETER
     Dosage: 140 MG
     Route: 042
     Dates: start: 20181026

REACTIONS (2)
  - Adrenal insufficiency [Recovered/Resolved]
  - Gastroenteritis [Recovered/Resolved]

NARRATIVE: CASE EVENT DATE: 20200222
